FAERS Safety Report 16138267 (Version 2)
Quarter: 2019Q2

REPORT INFORMATION
  Report Type: Spontaneous
  Country: GB (occurrence: GB)
  Receive Date: 20190330
  Receipt Date: 20190424
  Transmission Date: 20190711
  Serious: Yes (Hospitalization)
  Sender: FDA-Public Use
  Company Number: GB-ACCORD-117029

PATIENT
  Age: 57 Year
  Sex: Male

DRUGS (11)
  1. PYRIDOXINE [Suspect]
     Active Substance: PYRIDOXINE
     Indication: TUBERCULOSIS
     Dosage: MORNING
     Route: 048
  2. LOPERAMIDE [Concomitant]
     Active Substance: LOPERAMIDE
     Route: 048
  3. RIFINAH [Suspect]
     Active Substance: ISONIAZID\RIFAMPIN
     Indication: TUBERCULOSIS
     Dosage: 150/100MG, MORNING
     Route: 048
  4. SALBUTAMOL [Concomitant]
     Active Substance: ALBUTEROL
     Dosage: 1-2 FOUR TIMES DAILY AS NEEDED.
     Route: 055
  5. ADCAL-D3 [Concomitant]
     Active Substance: CALCIUM CARBONATE\CHOLECALCIFEROL
     Dosage: 750MG/200UNIT
     Route: 048
  6. RAMIPRIL. [Suspect]
     Active Substance: RAMIPRIL
     Indication: PRODUCT USED FOR UNKNOWN INDICATION
     Dosage: MORNING
     Route: 048
  7. CLOPIDOGREL [Concomitant]
     Active Substance: CLOPIDOGREL BISULFATE
     Dosage: MORNING
     Route: 048
  8. BISOPROLOL [Concomitant]
     Active Substance: BISOPROLOL
     Dosage: MORNING
     Route: 048
  9. FOSTAIR [Concomitant]
     Active Substance: BECLOMETHASONE\FORMOTEROL
     Dosage: 100MICROGRAMS/DOSE / 6MICROGRAMS/DOSE
     Route: 055
  10. ATORVASTATIN [Concomitant]
     Active Substance: ATORVASTATIN
     Dosage: NIGHT
     Route: 048
  11. RISEDRONIC ACID [Concomitant]
     Active Substance: RISEDRONIC ACID

REACTIONS (3)
  - Intentional product misuse [Unknown]
  - Gastrointestinal stoma complication [Unknown]
  - Acute kidney injury [Recovered/Resolved]

NARRATIVE: CASE EVENT DATE: 20181220
